FAERS Safety Report 22331666 (Version 1)
Quarter: 2023Q2

REPORT INFORMATION
  Report Type: Other
  Country: None (occurrence: US)
  Receive Date: 20230517
  Receipt Date: 20230517
  Transmission Date: 20230721
  Serious: Yes (Other)
  Sender: FDA-Public Use
  Company Number: US-P+L Developments of Newyork Corporation-2141578

PATIENT
  Age: 59 Year
  Sex: Female

DRUGS (1)
  1. NAPROXEN [Suspect]
     Active Substance: NAPROXEN
     Indication: Systemic lupus erythematosus
     Route: 065

REACTIONS (1)
  - Gastrointestinal disorder [Recovering/Resolving]
